FAERS Safety Report 9767995 (Version 1)
Quarter: 2013Q4

REPORT INFORMATION
  Report Type: Spontaneous
  Country: US (occurrence: None)
  Receive Date: 20131217
  Receipt Date: 20131217
  Transmission Date: 20140711
  Serious: Yes (Other)
  Sender: FDA-Public Use
  Company Number: 2013BAX009142

PATIENT
  Age: 51 Year
  Sex: Female
  Weight: 84 kg

DRUGS (1)
  1. GAMMAGARD LIQUID [Suspect]
     Indication: IMMUNODEFICIENCY
     Dosage: (20 GM, 4 WK), INTRAVENOUS?0.7143 GM (20 GM,1 IN 4 WK),INTRAVENOUS?

REACTIONS (3)
  - Cyanosis [None]
  - Chills [None]
  - Body temperature increased [None]
